FAERS Safety Report 12303987 (Version 1)
Quarter: 2016Q2

REPORT INFORMATION
  Report Type: Spontaneous
  Country: US (occurrence: US)
  Receive Date: 20160426
  Receipt Date: 20160426
  Transmission Date: 20160815
  Serious: Yes (Other)
  Sender: FDA-Public Use
  Company Number: US-JNJFOC-20160407236

PATIENT
  Sex: Male

DRUGS (9)
  1. RISPERDAL M-TAB [Suspect]
     Active Substance: RISPERIDONE
     Indication: SCHIZOAFFECTIVE DISORDER
     Route: 048
  2. RISPERDAL CONSTA [Suspect]
     Active Substance: RISPERIDONE
     Indication: SCHIZOAFFECTIVE DISORDER
     Route: 030
     Dates: start: 20110307
  3. INVEGA [Suspect]
     Active Substance: PALIPERIDONE
     Indication: HALLUCINATION
     Route: 048
  4. SEROQUEL [Suspect]
     Active Substance: QUETIAPINE FUMARATE
     Indication: DELUSION
     Route: 065
  5. HALDOL DECANOATE [Suspect]
     Active Substance: HALOPERIDOL DECANOATE
     Indication: DELUSION
     Route: 030
  6. INVEGA SUSTENNA [Suspect]
     Active Substance: PALIPERIDONE PALMITATE
     Indication: DELUSION
     Route: 030
  7. RISPERDAL CONSTA [Suspect]
     Active Substance: RISPERIDONE
     Indication: POST-TRAUMATIC STRESS DISORDER
     Route: 030
     Dates: start: 20110307
  8. INVEGA [Suspect]
     Active Substance: PALIPERIDONE
     Indication: DELUSION
     Route: 048
  9. RISPERDAL M-TAB [Suspect]
     Active Substance: RISPERIDONE
     Indication: POST-TRAUMATIC STRESS DISORDER
     Route: 048

REACTIONS (3)
  - Gynaecomastia [Unknown]
  - Wrong technique in product usage process [Unknown]
  - Weight increased [Unknown]

NARRATIVE: CASE EVENT DATE: 2012
